FAERS Safety Report 23723338 (Version 4)
Quarter: 2025Q1

REPORT INFORMATION
  Report Type: Report from Study
  Country: JP (occurrence: JP)
  Receive Date: 20240409
  Receipt Date: 20250306
  Transmission Date: 20250409
  Serious: Yes (Hospitalization, Other)
  Sender: EISAI
  Company Number: JP-Eisai-202215749_LEN-EC_P_1

PATIENT
  Age: 50 Year
  Sex: Female
  Weight: 48 kg

DRUGS (15)
  1. LENVIMA [Suspect]
     Active Substance: LENVATINIB
     Indication: Endometrial cancer
     Dates: start: 20230228, end: 20230313
  2. LENVIMA [Suspect]
     Active Substance: LENVATINIB
     Dates: start: 20230324, end: 20230326
  3. LENVIMA [Suspect]
     Active Substance: LENVATINIB
     Dates: start: 20230330, end: 20230331
  4. LENVIMA [Suspect]
     Active Substance: LENVATINIB
     Dates: start: 20230403, end: 20240221
  5. KEYTRUDA [Suspect]
     Active Substance: PEMBROLIZUMAB
     Indication: Endometrial cancer
     Route: 041
     Dates: start: 20230228
  6. AMLODIPINE [Concomitant]
     Active Substance: AMLODIPINE BESYLATE
     Indication: Hypertension
     Route: 048
     Dates: start: 20230301, end: 20230307
  7. AMLODIPINE [Concomitant]
     Active Substance: AMLODIPINE BESYLATE
     Route: 048
     Dates: start: 20230308, end: 20230522
  8. GLYCOSAMINOGLYCANS [Concomitant]
     Active Substance: GLYCOSAMINOGLYCANS
     Indication: Prophylaxis
     Route: 003
     Dates: start: 20230228, end: 20240221
  9. CALONAL [Concomitant]
     Active Substance: ACETAMINOPHEN
     Indication: Headache
     Route: 048
  10. HACHIAZULE [Concomitant]
     Indication: Prophylaxis
     Dates: start: 20230304, end: 20230317
  11. ???????????? [Concomitant]
     Indication: Pyrexia
     Route: 048
  12. ???????????? [Concomitant]
     Indication: Headache
  13. ???????? [Concomitant]
     Indication: Nausea
     Route: 048
  14. ???????? [Concomitant]
     Indication: Vomiting
  15. ???????? [Concomitant]
     Indication: Prophylaxis
     Dates: start: 20230316, end: 20240130

REACTIONS (3)
  - Neutropenia [Recovered/Resolved]
  - Nausea [Recovered/Resolved]
  - Vomiting [Recovered/Resolved]

NARRATIVE: CASE EVENT DATE: 20230306
